FAERS Safety Report 21902257 (Version 1)
Quarter: 2023Q1

REPORT INFORMATION
  Report Type: Spontaneous
  Country: US (occurrence: None)
  Receive Date: 20230124
  Receipt Date: 20230124
  Transmission Date: 20230418
  Serious: No
  Sender: FDA-Public Use
  Company Number: US-ARIS GLOBAL-UWM202204-000010

PATIENT
  Age: 70 Year
  Sex: Female
  Weight: 107.5 kg

DRUGS (3)
  1. CORGARD [Suspect]
     Active Substance: NADOLOL
     Indication: Tremor
     Route: 048
     Dates: start: 1989
  2. DESVENLAFAXINE [Concomitant]
     Active Substance: DESVENLAFAXINE
     Indication: Anxiety
     Dosage: 50MG
     Dates: start: 20211220
  3. DESVENLAFAXINE [Concomitant]
     Active Substance: DESVENLAFAXINE
     Indication: Depression

REACTIONS (1)
  - Product use in unapproved indication [Unknown]

NARRATIVE: CASE EVENT DATE: 19890101
